FAERS Safety Report 15567335 (Version 1)
Quarter: 2018Q4

REPORT INFORMATION
  Report Type: Spontaneous
  Country: AT (occurrence: AT)
  Receive Date: 20181030
  Receipt Date: 20181030
  Transmission Date: 20190205
  Serious: Yes (Other)
  Sender: FDA-Public Use
  Company Number: AT-PROVELL PHARMACEUTICALS-2058229

PATIENT
  Sex: Male

DRUGS (1)
  1. EUTHYROX [Suspect]
     Active Substance: LEVOTHYROXINE SODIUM
     Indication: PRODUCT USED FOR UNKNOWN INDICATION

REACTIONS (16)
  - Suicidal ideation [None]
  - Feeling abnormal [None]
  - Disorientation [None]
  - Disturbance in attention [None]
  - Palpitations [None]
  - Psychiatric symptom [None]
  - Drug intolerance [None]
  - Hyperhidrosis [None]
  - Depression [None]
  - Confusional state [None]
  - Amnesia [None]
  - Tremor [None]
  - Agitation [None]
  - Loss of consciousness [None]
  - Aphasia [None]
  - Insomnia [None]
